FAERS Safety Report 23520015 (Version 1)
Quarter: 2024Q1

REPORT INFORMATION
  Report Type: Spontaneous
  Country: US (occurrence: None)
  Receive Date: 20240214
  Receipt Date: 20240214
  Transmission Date: 20240409
  Serious: Yes (Other)
  Sender: FDA-Public Use
  Company Number: 2024A034981

PATIENT
  Sex: Female
  Weight: 133.8 kg

DRUGS (2)
  1. BREZTRI [Suspect]
     Active Substance: BUDESONIDE\FORMOTEROL\GLYCOPYRROLATE
     Indication: Dyspnoea
     Dosage: 2UG/INHAL EVERY 12 HOURS
     Route: 055
     Dates: start: 20231218
  2. BREZTRI [Suspect]
     Active Substance: BUDESONIDE\FORMOTEROL\GLYCOPYRROLATE
     Indication: Ex-tobacco user
     Dosage: 2UG/INHAL EVERY 12 HOURS
     Route: 055
     Dates: start: 20231218

REACTIONS (2)
  - Dysphonia [Recovering/Resolving]
  - Muscle spasms [Recovering/Resolving]
